FAERS Safety Report 10868179 (Version 1)
Quarter: 2015Q1

REPORT INFORMATION
  Report Type: Spontaneous
  Country: DE (occurrence: DE)
  Receive Date: 20150225
  Receipt Date: 20150225
  Transmission Date: 20150721
  Serious: Yes (Other)
  Sender: FDA-Public Use
  Company Number: DE-ACTAVIS-2015-02871

PATIENT
  Age: 32 Year
  Sex: Female
  Weight: 58 kg

DRUGS (2)
  1. VENLAFAXINE (UNKNOWN) [Suspect]
     Active Substance: VENLAFAXINE HYDROCHLORIDE
     Indication: ANXIETY DISORDER
     Dosage: 150 MG, DAILY
     Route: 048
     Dates: start: 20140120, end: 20140926
  2. QUETIAPINE (UNKNOWN) [Suspect]
     Active Substance: QUETIAPINE
     Indication: ANXIETY DISORDER
     Dosage: 50 MG, DAILY
     Route: 048
     Dates: start: 20140120, end: 20140926

REACTIONS (2)
  - Gestational diabetes [Recovered/Resolved]
  - Maternal exposure during pregnancy [Recovered/Resolved]
